FAERS Safety Report 16449015 (Version 1)
Quarter: 2019Q2

REPORT INFORMATION
  Report Type: Spontaneous
  Country: CA (occurrence: CA)
  Receive Date: 20190619
  Receipt Date: 20190619
  Transmission Date: 20190711
  Serious: Yes (Other)
  Sender: FDA-Public Use
  Company Number: CA-AUROBINDO-AUR-APL-2019-033801

PATIENT

DRUGS (7)
  1. PULMICORT TURBUHALER [Concomitant]
     Active Substance: BUDESONIDE
     Indication: ASTHMA
  2. OMALIZUMAB. [Suspect]
     Active Substance: OMALIZUMAB
     Indication: CHRONIC SPONTANEOUS URTICARIA
     Dosage: 300 MILLIGRAM
     Route: 058
  3. BILASTINE [Concomitant]
     Active Substance: BILASTINE
     Indication: URTICARIA
     Dosage: 1.0 DOSAGE FORM, ONCE A DAY
     Route: 065
  4. SINGULAIR [Concomitant]
     Active Substance: MONTELUKAST SODIUM
     Indication: URTICARIA
     Dosage: 1.0 DOSAGE FORM, ONCE A DAY
     Route: 065
  5. RIZATRIPTAN. [Suspect]
     Active Substance: RIZATRIPTAN
     Indication: MIGRAINE
     Dosage: 1.0 DOSAGE FORM, ONCE A DAY
     Route: 065
  6. PULMICORT TURBUHALER [Concomitant]
     Active Substance: BUDESONIDE
     Indication: URTICARIA
     Dosage: 1.0 DOSAGE FORM
     Route: 065
  7. VENTOLIN [Concomitant]
     Active Substance: ALBUTEROL SULFATE
     Indication: URTICARIA
     Dosage: 1.0 DOSAGE FORM
     Route: 065

REACTIONS (7)
  - Musculoskeletal stiffness [Recovered/Resolved]
  - Peripheral swelling [Recovered/Resolved]
  - Pharyngeal swelling [Recovered/Resolved]
  - Asthma [Recovered/Resolved]
  - Food allergy [Recovered/Resolved]
  - Hypersensitivity [Recovered/Resolved]
  - Nasopharyngitis [Recovered/Resolved]
